FAERS Safety Report 19508449 (Version 3)
Quarter: 2021Q3

REPORT INFORMATION
  Report Type: Spontaneous
  Country: US (occurrence: US)
  Receive Date: 20210708
  Receipt Date: 20210820
  Transmission Date: 20211014
  Serious: Yes (Other)
  Sender: FDA-Public Use
  Company Number: US-PFIZER INC-2021783283

PATIENT
  Age: 58 Year
  Sex: Female

DRUGS (1)
  1. TOZINAMERAN. [Suspect]
     Active Substance: TOZINAMERAN
     Indication: COVID-19 IMMUNISATION
     Dosage: DOSE NUMBER UNKNOWN, SINGLE
     Dates: start: 2021, end: 2021

REACTIONS (2)
  - Tumour inflammation [Unknown]
  - Bloody discharge [Unknown]

NARRATIVE: CASE EVENT DATE: 2021
